FAERS Safety Report 8837558 (Version 1)
Quarter: 2012Q4

REPORT INFORMATION
  Report Type: Report from Study
  Country: CA (occurrence: CA)
  Receive Date: 20121012
  Receipt Date: 20121012
  Transmission Date: 20130627
  Serious: Yes (Other)
  Sender: FDA-Public Use
  Company Number: CA-JNJFOC-20121001962

PATIENT
  Sex: Female
  Weight: 40 kg

DRUGS (12)
  1. REMICADE [Suspect]
     Indication: PRODUCT USED FOR UNKNOWN INDICATION
     Dosage: for 52 weeks
     Route: 042
     Dates: start: 20110930
  2. PREDNISONE [Concomitant]
     Dosage: 2 drops for 3 days, 1 drop for 5 days
     Route: 065
  3. COMBIGAN [Concomitant]
     Route: 065
  4. AZOPT [Concomitant]
     Dosage: 2 drops
     Route: 065
  5. VIGAMOX [Concomitant]
     Dosage: 4 drops until finished
     Route: 065
  6. CYCLOGYL [Concomitant]
     Dosage: 1 drop for 3 days
     Route: 065
  7. LUMIGAN [Concomitant]
     Dosage: 1 drop nightly
     Route: 065
  8. ACETAZOLAMIDE [Concomitant]
     Route: 065
  9. METHOTREXATE [Concomitant]
     Route: 065
  10. BENADRYL [Concomitant]
     Indication: PREMEDICATION
     Route: 048
  11. TYLENOL [Concomitant]
     Indication: PREMEDICATION
     Route: 048
  12. FOLIC ACID [Concomitant]
     Dosage: 2 drops for 3 days, 1 drop for 5 days
     Route: 065

REACTIONS (1)
  - Glaucoma [Recovering/Resolving]
